FAERS Safety Report 6888501-8 (Version None)
Quarter: 2010Q3

REPORT INFORMATION
  Report Type: 
  Country: None (occurrence: None)
  Receive Date: 20100730
  Receipt Date: 20100719
  Transmission Date: 20110219
  Serious: Yes (Other)
  Sender: FDA-Public Use
  Company Number: PHHY2010MX47373

PATIENT
  Age: 86 Year
  Sex: Female

DRUGS (2)
  1. ACLASTA [Suspect]
     Indication: OSTEOPOROSIS
     Dosage: 5 MG ONCE A YEAR
     Route: 042
     Dates: start: 20090401
  2. ANTIBIOTICS [Concomitant]

REACTIONS (2)
  - DEAFNESS [None]
  - MENTAL DISORDER [None]
